FAERS Safety Report 7442531-6 (Version None)
Quarter: 2011Q2

REPORT INFORMATION
  Report Type: 
  Country: None (occurrence: None)
  Receive Date: 20110428
  Receipt Date: 20110419
  Transmission Date: 20111010
  Serious: Yes (Other)
  Sender: FDA-Public Use
  Company Number: JP-ALEXION-A201100418

PATIENT
  Age: 62 Year
  Sex: Male

DRUGS (9)
  1. SOLIRIS [Suspect]
     Dosage: 900 MG, Q2W
     Route: 042
  2. PREDONINE [Concomitant]
     Dosage: 12.5 MG/DL, UNK
     Dates: start: 20100209, end: 20100315
  3. PREDONINE [Concomitant]
     Dosage: 10 MG, UNK
     Dates: start: 20100316, end: 20110208
  4. SOLIRIS [Suspect]
     Dosage: 600 MG, Q2W
     Route: 042
     Dates: start: 20110323
  5. LENDORMIN [Concomitant]
     Dosage: 1 TAB, QD
     Dates: start: 20100223
  6. PREDONINE [Concomitant]
     Dosage: 5 MG, QD
     Dates: start: 20110209
  7. PREDONINE [Concomitant]
     Dosage: 15 MG, UNK
     Dates: start: 20090908, end: 20100208
  8. SOLIRIS [Suspect]
     Indication: PAROXYSMAL NOCTURNAL HAEMOGLOBINURIA
     Dosage: 600 MG, QW
     Route: 042
     Dates: start: 20101227
  9. BLOOD AND RELATED PRODUCTS [Concomitant]
     Dosage: 42 UNITS AND 17 TIMES

REACTIONS (4)
  - PNEUMONIA [None]
  - HYPOAESTHESIA [None]
  - NEUTROPENIA [None]
  - HEADACHE [None]
